FAERS Safety Report 8091022-0 (Version None)
Quarter: 2012Q1

REPORT INFORMATION
  Report Type: 
  Country: None (occurrence: None)
  Receive Date: 20120128
  Receipt Date: 20110810
  Transmission Date: 20120608
  Serious: No
  Sender: FDA-Public Use
  Company Number: US-ABBOTT-11P-163-0845211-00

PATIENT
  Sex: Male
  Weight: 108.96 kg

DRUGS (3)
  1. CARTIA XT [Concomitant]
     Indication: HYPERTENSION
  2. LOSARTAN POTASSIUM [Concomitant]
     Indication: HYPERTENSION
  3. HUMIRA [Suspect]
     Indication: PSORIASIS
     Dates: start: 20110101

REACTIONS (1)
  - CONTUSION [None]
